FAERS Safety Report 9536139 (Version 2)
Quarter: 2013Q4

REPORT INFORMATION
  Report Type: Spontaneous
  Country: JP (occurrence: JP)
  Receive Date: 20130919
  Receipt Date: 20131006
  Transmission Date: 20140711
  Serious: Yes (Other)
  Sender: FDA-Public Use
  Company Number: JP-SUCAMPO PHARMA AMERICAS, INC-SPI201300650

PATIENT
  Age: 70 Year
  Sex: Female

DRUGS (10)
  1. AMITIZA [Suspect]
     Indication: CONSTIPATION
     Dosage: 24 MCG, BID
     Route: 048
     Dates: start: 20130829, end: 20130830
  2. NEXIUM [Suspect]
     Indication: GASTROOESOPHAGEAL REFLUX DISEASE
     Dosage: UNK
     Route: 048
     Dates: start: 20130829
  3. AZULENE-GLUTAMINE FINE GRANULE [Suspect]
     Indication: GASTRITIS
     Dosage: UNK, 3
     Route: 048
     Dates: start: 20130829
  4. THYRADIN S [Concomitant]
     Dosage: UNK
     Route: 048
  5. MEILAX [Concomitant]
     Dosage: 1 MG, QD
     Route: 048
  6. EC-DOPARL [Concomitant]
     Dosage: UNK, TID
     Route: 048
  7. REQUIP [Concomitant]
     Dosage: 2 MG, TID
     Route: 048
  8. GASRIC [Concomitant]
     Dosage: 20 MG, QD
     Route: 048
  9. PURSENNID [Concomitant]
     Dosage: 24 MCG, QD
  10. MUCOSTA [Concomitant]
     Dosage: 100 MG, TID

REACTIONS (4)
  - Convulsion [Recovered/Resolved]
  - Chills [Recovered/Resolved]
  - Tremor [Recovered/Resolved]
  - Nausea [Recovered/Resolved]
